FAERS Safety Report 23292505 (Version 1)
Quarter: 2023Q4

REPORT INFORMATION
  Report Type: Spontaneous
  Country: US (occurrence: None)
  Receive Date: 20231212
  Receipt Date: 20231212
  Transmission Date: 20240110
  Serious: Yes (Other)
  Sender: FDA-Public Use
  Company Number: None

PATIENT
  Age: 43 Year
  Sex: Male
  Weight: 81.45 kg

DRUGS (1)
  1. SKYRIZI [Suspect]
     Active Substance: RISANKIZUMAB-RZAA

REACTIONS (5)
  - Hallucination [None]
  - Loss of consciousness [None]
  - Seizure [None]
  - Hypersomnia [None]
  - Nervous system disorder [None]

NARRATIVE: CASE EVENT DATE: 20230713
